FAERS Safety Report 13343072 (Version 3)
Quarter: 2018Q2

REPORT INFORMATION
  Report Type: Spontaneous
  Country: US (occurrence: US)
  Receive Date: 20170316
  Receipt Date: 20180612
  Transmission Date: 20180711
  Serious: Yes (Disabling, Other)
  Sender: FDA-Public Use
  Company Number: US-ASTRAZENECA-2017SE26624

PATIENT
  Age: 20224 Day
  Sex: Male
  Weight: 121.6 kg

DRUGS (24)
  1. NEXIUM [Suspect]
     Active Substance: ESOMEPRAZOLE MAGNESIUM
     Indication: GASTROOESOPHAGEAL REFLUX DISEASE
     Dosage: 40.0MG UNKNOWN
     Route: 048
     Dates: start: 20140603
  2. CLARINEX [Concomitant]
     Active Substance: DESLORATADINE
     Dates: start: 20151117
  3. TYLENOL [Concomitant]
     Active Substance: ACETAMINOPHEN
     Dosage: 325 MG TABLET 1 TABLET AS NEEDED EVERY 6 HRS
  4. PROCARDIA-XL [Concomitant]
  5. ERGOCALCIFEROL. [Concomitant]
     Active Substance: ERGOCALCIFEROL
     Dosage: 50,000 UNITS CAPSULE 1 CAPSULE ONCE A MONTH
  6. PAXIL [Concomitant]
     Active Substance: PAROXETINE HYDROCHLORIDE
     Dates: start: 20151116
  7. LONITEN [Concomitant]
     Active Substance: MINOXIDIL
     Dates: start: 20151002
  8. METFORMIN HYDROCHLORIDE. [Concomitant]
     Active Substance: METFORMIN HYDROCHLORIDE
     Dosage: 500.0MG UNKNOWN
     Dates: start: 20051125
  9. SIMVASTATIN. [Concomitant]
     Active Substance: SIMVASTATIN
     Dosage: 40.0MG UNKNOWN
     Dates: start: 20070518
  10. CARVEDILOL. [Concomitant]
     Active Substance: CARVEDILOL
     Dosage: 25.0MG UNKNOWN
     Dates: start: 20080829
  11. SPIRIVA [Concomitant]
     Active Substance: TIOTROPIUM BROMIDE MONOHYDRATE
  12. CLONIDINE HYDROCHLORIDE. [Concomitant]
     Active Substance: CLONIDINE HYDROCHLORIDE
     Dates: start: 20051028
  13. NEXIUM [Suspect]
     Active Substance: ESOMEPRAZOLE MAGNESIUM
     Indication: GASTROOESOPHAGEAL REFLUX DISEASE
     Dosage: 40.0MG UNKNOWN
     Route: 048
     Dates: start: 20060512, end: 201502
  14. KLOR-CON [Concomitant]
     Active Substance: POTASSIUM CHLORIDE
     Dosage: 20 MEQ TABLET EXTENDED RELEASE 2 TABLETS TWICE A DAY
  15. NEXIUM [Suspect]
     Active Substance: ESOMEPRAZOLE MAGNESIUM
     Indication: GASTROOESOPHAGEAL REFLUX DISEASE
     Dosage: 40.0MG UNKNOWN
     Route: 048
     Dates: start: 2003, end: 2014
  16. QUINAPRIL. [Concomitant]
     Active Substance: QUINAPRIL
  17. HYDRALAZINE HCL [Concomitant]
     Active Substance: HYDRALAZINE HYDROCHLORIDE
  18. NOVOLOG [Concomitant]
     Active Substance: INSULIN ASPART
     Dates: start: 20051028
  19. PROTONIX [Suspect]
     Active Substance: PANTOPRAZOLE SODIUM
     Indication: GASTROOESOPHAGEAL REFLUX DISEASE
     Dosage: 40.0MG UNKNOWN
     Route: 048
     Dates: start: 20051125
  20. APRESOLINE HYDROCHLORIDE [Concomitant]
     Active Substance: HYDRALAZINE HYDROCHLORIDE
  21. LANTUS [Concomitant]
     Active Substance: INSULIN GLARGINE
     Dates: start: 20051028
  22. METOPROLOL TARTRATE. [Concomitant]
     Active Substance: METOPROLOL TARTRATE
  23. EPLERENONE. [Concomitant]
     Active Substance: EPLERENONE
  24. LIPITOR [Concomitant]
     Active Substance: ATORVASTATIN CALCIUM
     Dates: start: 20151002

REACTIONS (4)
  - Renal failure [Unknown]
  - End stage renal disease [Not Recovered/Not Resolved]
  - Chronic kidney disease [Not Recovered/Not Resolved]
  - Acute kidney injury [Not Recovered/Not Resolved]

NARRATIVE: CASE EVENT DATE: 20121008
